FAERS Safety Report 15179849 (Version 1)
Quarter: 2018Q3

REPORT INFORMATION
  Report Type: Spontaneous
  Country: FR (occurrence: FR)
  Receive Date: 20180723
  Receipt Date: 20180723
  Transmission Date: 20181010
  Serious: Yes (Hospitalization, Other)
  Sender: FDA-Public Use
  Company Number: FR-REGENERON PHARMACEUTICALS, INC.-2018-30238

PATIENT

DRUGS (1)
  1. EYLEA [Suspect]
     Active Substance: AFLIBERCEPT
     Indication: AGE-RELATED MACULAR DEGENERATION
     Dosage: 1 DF, UNK
     Route: 031

REACTIONS (4)
  - Vitrectomy [Recovered/Resolved]
  - Cataract subcapsular [Recovered/Resolved]
  - Endophthalmitis [Recovered/Resolved with Sequelae]
  - Vitrectomy [Recovered/Resolved]

NARRATIVE: CASE EVENT DATE: 20160624
